FAERS Safety Report 6291421-3 (Version None)
Quarter: 2009Q3

REPORT INFORMATION
  Report Type: 
  Country: None (occurrence: None)
  Receive Date: 20090730
  Receipt Date: 20090723
  Transmission Date: 20100115
  Serious: Yes (Other)
  Sender: FDA-Public Use
  Company Number: HU-WYE-H09756909

PATIENT
  Sex: Male

DRUGS (13)
  1. CORDARONE [Suspect]
     Indication: VENTRICULAR TACHYCARDIA
     Dates: start: 20070901, end: 20080429
  2. CORDARONE [Suspect]
     Indication: VENTRICULAR EXTRASYSTOLES
  3. ACETYLSALICYLIC ACID [Concomitant]
     Indication: CONGESTIVE CARDIOMYOPATHY
     Route: 048
  4. TRITACE [Concomitant]
     Indication: CONGESTIVE CARDIOMYOPATHY
     Route: 048
  5. TRITACE [Concomitant]
     Indication: HYPERTENSION
  6. WARFARIN SODIUM [Concomitant]
     Indication: THROMBOSIS PROPHYLAXIS
     Route: 048
  7. HYDROCHLOROTHIAZIDE [Concomitant]
     Indication: CONGESTIVE CARDIOMYOPATHY
     Dosage: 25 MG
  8. HYDROCHLOROTHIAZIDE [Concomitant]
     Indication: HYPERTENSION
  9. LESCOL [Concomitant]
     Indication: HYPERLIPIDAEMIA
     Dosage: 1 UNIT EVERY 1 DAY
     Route: 048
  10. QUAMATEL [Concomitant]
     Indication: PROPHYLAXIS
     Route: 048
  11. METOPROLOL TARTRATE [Suspect]
     Indication: VENTRICULAR TACHYCARDIA
     Dates: start: 20070901
  12. METOPROLOL TARTRATE [Suspect]
     Indication: VENTRICULAR EXTRASYSTOLES
  13. NORVASC [Concomitant]
     Indication: HYPERTENSION
     Route: 048

REACTIONS (3)
  - CONDITION AGGRAVATED [None]
  - DRUG INEFFECTIVE [None]
  - LEFT VENTRICULAR DYSFUNCTION [None]
